FAERS Safety Report 5334774-2 (Version None)
Quarter: 2007Q2

REPORT INFORMATION
  Report Type: 
  Country: None (occurrence: None)
  Receive Date: 20070525
  Receipt Date: 20070514
  Transmission Date: 20071010
  Serious: Yes (Hospitalization)
  Sender: FDA-Public Use
  Company Number: GB-ROCHE-498247

PATIENT
  Age: 42 Year
  Sex: Female
  Weight: 103.4 kg

DRUGS (3)
  1. XENICAL [Suspect]
     Indication: OBESITY
     Route: 048
     Dates: start: 20060908, end: 20070414
  2. UNSPECIFIED MEDICATIONS [Concomitant]
     Route: 055
  3. STEROID NOS [Concomitant]

REACTIONS (2)
  - ASTHMA [None]
  - LOWER RESPIRATORY TRACT INFECTION [None]
